FAERS Safety Report 11064483 (Version 1)
Quarter: 2015Q2

REPORT INFORMATION
  Report Type: Spontaneous
  Country: US (occurrence: US)
  Receive Date: 20150424
  Receipt Date: 20150424
  Transmission Date: 20150821
  Serious: No
  Sender: FDA-Public Use
  Company Number: US-PFIZER INC-2015137350

PATIENT
  Age: 63 Year
  Sex: Male
  Weight: 77 kg

DRUGS (1)
  1. VIAGRA [Suspect]
     Active Substance: SILDENAFIL CITRATE
     Dosage: 50 MG (HALF OF 100MG TABLET)

REACTIONS (2)
  - Expired product administered [Unknown]
  - Drug ineffective [Unknown]
